FAERS Safety Report 6494306-2 (Version None)
Quarter: 2009Q4

REPORT INFORMATION
  Report Type: 
  Country: None (occurrence: None)
  Receive Date: 20091214
  Receipt Date: 20090205
  Transmission Date: 20100525
  Serious: No
  Sender: FDA-Public Use
  Company Number: US-BRISTOL-MYERS SQUIBB COMPANY-14495949

PATIENT
  Sex: Female

DRUGS (3)
  1. ABILIFY [Suspect]
     Indication: DEPRESSION
  2. NARCOTIC NOS [Concomitant]
     Indication: PAIN
  3. TRICYCLIC ANTIDEPRESSANTS [Concomitant]

REACTIONS (2)
  - MIGRAINE [None]
  - MUSCULOSKELETAL STIFFNESS [None]
